FAERS Safety Report 24359251 (Version 1)
Quarter: 2024Q3

REPORT INFORMATION
  Report Type: Spontaneous
  Country: US (occurrence: US)
  Receive Date: 20240924
  Receipt Date: 20240924
  Transmission Date: 20241016
  Serious: No
  Sender: BLUEPRINT MEDICINES
  Company Number: US-BLUEPRINT MEDICINES CORPORATION-2024BUS004475

PATIENT

DRUGS (1)
  1. GAVRETO [Suspect]
     Active Substance: PRALSETINIB
     Indication: Lung neoplasm malignant
     Dosage: 100 MILLIGRAM, BID
     Route: 048
     Dates: start: 20240713

REACTIONS (2)
  - Fatigue [Unknown]
  - Dehydration [Unknown]
